FAERS Safety Report 8543716-8 (Version None)
Quarter: 2012Q3

REPORT INFORMATION
  Report Type: 
  Country: None (occurrence: None)
  Receive Date: 20120727
  Receipt Date: 20120724
  Transmission Date: 20120928
  Serious: Yes (Life-Threatening, Other)
  Sender: FDA-Public Use
  Company Number: TW-ROXANE LABORATORIES, INC.-2012-RO-01597RO

PATIENT
  Age: 1 Day
  Sex: Male

DRUGS (3)
  1. HEROIN [Suspect]
     Indication: FOETAL EXPOSURE DURING PREGNANCY
     Route: 064
  2. AMPHETAMINES [Suspect]
     Indication: FOETAL EXPOSURE DURING PREGNANCY
     Route: 064
  3. METHADONE HCL [Suspect]
     Indication: FOETAL EXPOSURE DURING PREGNANCY
     Route: 064

REACTIONS (12)
  - CAESAREAN SECTION [None]
  - MATERNAL DRUGS AFFECTING FOETUS [None]
  - TREMOR NEONATAL [None]
  - DRUG WITHDRAWAL SYNDROME NEONATAL [None]
  - DEVELOPMENTAL DELAY [None]
  - FOETAL GROWTH RESTRICTION [None]
  - FAILURE TO THRIVE [None]
  - NEONATAL ASPIRATION [None]
  - LOW BIRTH WEIGHT BABY [None]
  - CRYING [None]
  - POOR SUCKING REFLEX [None]
  - PREMATURE BABY [None]
